FAERS Safety Report 8776000 (Version 1)
Quarter: 2012Q4

REPORT INFORMATION
  Report Type: 
  Country: US (occurrence: US)
  Receive Date: 20120910
  Receipt Date: 20120910
  Transmission Date: 20130627
  Serious: Yes (Other)
  Sender: FDA-Public Use
  Company Number: US-BRISTOL-MYERS SQUIBB COMPANY-16922106

PATIENT
  Age: 61 Year
  Sex: Female
  Weight: 113 kg

DRUGS (4)
  1. ORENCIA [Suspect]
     Indication: RHEUMATOID ARTHRITIS
     Dosage: Last inf:14AUG2012.
     Route: 042
     Dates: start: 201201
  2. PREDNISONE [Suspect]
  3. MELOXICAM [Concomitant]
  4. PLAQUENIL [Concomitant]

REACTIONS (5)
  - Pneumonia [Unknown]
  - Arthropathy [Unknown]
  - Stress [Unknown]
  - Rheumatoid arthritis [Unknown]
  - Headache [Unknown]
